FAERS Safety Report 11812818 (Version 9)
Quarter: 2016Q4

REPORT INFORMATION
  Report Type: Report from Study
  Country: CA (occurrence: CA)
  Receive Date: 20151209
  Receipt Date: 20161215
  Transmission Date: 20170206
  Serious: Yes (Hospitalization, Other)
  Sender: FDA-Public Use
  Company Number: CA-ROCHE-ITM201506IM018030

PATIENT
  Sex: Male
  Weight: 85.9 kg

DRUGS (3)
  1. ESBRIET [Suspect]
     Active Substance: PIRFENIDONE
     Route: 048
     Dates: start: 20141107
  2. ESBRIET [Suspect]
     Active Substance: PIRFENIDONE
     Indication: IDIOPATHIC PULMONARY FIBROSIS
     Dosage: 2403 MG/DAY
     Route: 048
     Dates: start: 20141021
  3. ESBRIET [Suspect]
     Active Substance: PIRFENIDONE
     Route: 048
     Dates: start: 201501

REACTIONS (13)
  - Hypoacusis [Unknown]
  - Hypoxia [Unknown]
  - Cough [Unknown]
  - Lung disorder [Unknown]
  - Amnesia [Not Recovered/Not Resolved]
  - Oxygen supplementation [Not Recovered/Not Resolved]
  - Balance disorder [Unknown]
  - Dyspnoea [Unknown]
  - Deafness [Not Recovered/Not Resolved]
  - Pulmonary function test decreased [Unknown]
  - Anxiety [Unknown]
  - Pulmonary function test abnormal [Unknown]
  - Memory impairment [Unknown]
